FAERS Safety Report 18978689 (Version 2)
Quarter: 2021Q3

REPORT INFORMATION
  Report Type: Spontaneous
  Country: US (occurrence: US)
  Receive Date: 20210308
  Receipt Date: 20210914
  Transmission Date: 20211014
  Serious: No
  Sender: FDA-Public Use
  Company Number: NVSC2021US047083

PATIENT
  Sex: Male

DRUGS (1)
  1. PROMACTA [Suspect]
     Active Substance: ELTROMBOPAG OLAMINE
     Indication: PRODUCT USED FOR UNKNOWN INDICATION
     Dosage: 50 MG (EVERY 3 DAY)
     Route: 048

REACTIONS (5)
  - Platelet count decreased [Unknown]
  - Extra dose administered [Unknown]
  - Fungal test positive [Unknown]
  - Platelet count increased [Unknown]
  - Full blood count increased [Unknown]
